FAERS Safety Report 9478114 (Version 1)
Quarter: 2013Q3

REPORT INFORMATION
  Report Type: Spontaneous
  Country: US (occurrence: US)
  Receive Date: 20130827
  Receipt Date: 20130827
  Transmission Date: 20140515
  Serious: Yes (Other)
  Sender: FDA-Public Use
  Company Number: US-BAYER-2013-100565

PATIENT
  Age: 21 Year
  Sex: Female

DRUGS (4)
  1. YASMIN [Suspect]
  2. ZOLOFT [Concomitant]
     Indication: ANXIETY
     Dosage: 50 MG, UNK
  3. ZYRTEC [Concomitant]
     Dosage: 10 MG, UNK
  4. AMITRIPTYLINE [Concomitant]
     Dosage: 10 MG, UNK

REACTIONS (2)
  - Retinal artery thrombosis [None]
  - Retinal infarction [None]
